FAERS Safety Report 23952314 (Version 2)
Quarter: 2024Q2

REPORT INFORMATION
  Report Type: Spontaneous
  Country: US (occurrence: None)
  Receive Date: 20240607
  Receipt Date: 20240611
  Transmission Date: 20240716
  Serious: Yes (Hospitalization)
  Sender: FDA-Public Use
  Company Number: 2024A129534

PATIENT
  Age: 15 Year
  Sex: Male

DRUGS (9)
  1. SEROQUEL [Suspect]
     Active Substance: QUETIAPINE FUMARATE
     Dosage: 100.0MG UNKNOWN
     Route: 048
  2. SEROQUEL [Suspect]
     Active Substance: QUETIAPINE FUMARATE
     Dosage: 200.0MG UNKNOWN
     Route: 048
     Dates: start: 20240206
  3. SEROQUEL [Suspect]
     Active Substance: QUETIAPINE FUMARATE
     Route: 048
  4. INVESTIGATIONAL PRODUCT [Suspect]
     Active Substance: INVESTIGATIONAL PRODUCT
     Indication: Lyme disease
     Dosage: BLINDED, INFORMATION WITHHELD.100.0MG UNKNOWN
     Dates: start: 20230913, end: 20230913
  5. LITHOBID [Concomitant]
     Active Substance: LITHIUM CARBONATE
     Dates: start: 20230910, end: 20240208
  6. VYVANSE [Concomitant]
     Active Substance: LISDEXAMFETAMINE DIMESYLATE
     Dates: start: 2015, end: 20240208
  7. LATUDA [Concomitant]
     Active Substance: LURASIDONE HYDROCHLORIDE
     Dates: start: 202203, end: 20240208
  8. TENEX [Concomitant]
     Active Substance: GUANFACINE HYDROCHLORIDE
     Dates: start: 2013, end: 20240208
  9. LAMICTAL [Concomitant]
     Active Substance: LAMOTRIGINE
     Dates: start: 20230516, end: 20240208

REACTIONS (4)
  - Disruptive mood dysregulation disorder [Recovered/Resolved]
  - Oppositional defiant disorder [Recovered/Resolved]
  - Anxiety [Not Recovered/Not Resolved]
  - Depression [Not Recovered/Not Resolved]

NARRATIVE: CASE EVENT DATE: 20240201
